FAERS Safety Report 10009496 (Version 1)
Quarter: 2014Q1

REPORT INFORMATION
  Report Type: Spontaneous
  Country: RU (occurrence: RU)
  Receive Date: 20140313
  Receipt Date: 20140313
  Transmission Date: 20141002
  Serious: Yes (Life-Threatening, Hospitalization)
  Sender: FDA-Public Use
  Company Number: RU-B.I. PHARMACEUTICALS,INC./RIDGEFIELD-2014-BI-10743RZ

PATIENT
  Age: 75 Year
  Sex: Male

DRUGS (3)
  1. PRADAXA [Suspect]
     Indication: THROMBOSIS PROPHYLAXIS
     Dosage: 220 MG
     Route: 048
     Dates: start: 201306, end: 201310
  2. KALIMAYT (ACTIVE SUBSTANCE IS UNKNOWN) [Concomitant]
     Dosage: 30 MG
     Route: 065
     Dates: start: 20140122, end: 20140126
  3. GLIMEPIRIDE [Concomitant]
     Indication: DIABETES MELLITUS
     Route: 065

REACTIONS (4)
  - Encephalopathy [Not Recovered/Not Resolved]
  - Renal failure [Not Recovered/Not Resolved]
  - Haematuria [Unknown]
  - Arrhythmia [Not Recovered/Not Resolved]
